FAERS Safety Report 4744997-9 (Version None)
Quarter: 2005Q3

REPORT INFORMATION
  Report Type: 
  Country: None (occurrence: None)
  Receive Date: 20050815
  Receipt Date: 20050728
  Transmission Date: 20060218
  Serious: Yes (Other)
  Sender: FDA-Public Use
  Company Number: 200516781GDDC

PATIENT
  Age: 81 Year
  Sex: Male

DRUGS (2)
  1. TELFAST [Suspect]
     Route: 048
     Dates: start: 20010101
  2. TAZAC [Concomitant]
     Route: 048
     Dates: start: 20010101

REACTIONS (1)
  - NEUTROPENIA [None]
